FAERS Safety Report 21771324 (Version 11)
Quarter: 2023Q4

REPORT INFORMATION
  Report Type: Report from Study
  Country: GB (occurrence: GB)
  Receive Date: 20221223
  Receipt Date: 20231228
  Transmission Date: 20240109
  Serious: Yes (Death, Hospitalization)
  Sender: FDA-Public Use
  Company Number: GB-ROCHE-3237177

PATIENT
  Age: 70 Year
  Sex: Male
  Weight: 77.6 kg

DRUGS (8)
  1. BEVACIZUMAB [Suspect]
     Active Substance: BEVACIZUMAB
     Indication: Hepatocellular carcinoma
     Dosage: 1100 MILLIGRAM
     Route: 065
     Dates: start: 20220824
  2. ATEZOLIZUMAB [Suspect]
     Active Substance: ATEZOLIZUMAB
     Indication: Hepatocellular carcinoma
     Dosage: 1200 MILLIGRAM, Q3WK, INTRAVENOUS DRIP END DATE OF MOST RECENT DOSE OF STUDY DRUG PRIOR TO AE: 03/NO
     Route: 041
     Dates: start: 20220824
  3. CAPECITABINE [Concomitant]
     Active Substance: CAPECITABINE
     Indication: Neoplasm malignant
     Dosage: UNK
     Route: 048
  4. CAPECITABINE [Concomitant]
     Active Substance: CAPECITABINE
  5. CODEINE PHOSPHATE [Concomitant]
     Active Substance: CODEINE PHOSPHATE
     Dosage: 30 MILLIGRAM, TID
     Route: 065
     Dates: start: 20221024, end: 20221107
  6. LOPERAMIDE [Concomitant]
     Active Substance: LOPERAMIDE
     Dosage: 8 MILLIGRAM, AS NECESSARY
     Dates: start: 2009, end: 20230104
  7. MORPHINE SULFATE [Concomitant]
     Active Substance: MORPHINE SULFATE
     Dosage: 10 MILLIGRAM, AS NECESSARY
     Dates: start: 20221108, end: 20230104
  8. ACETAMINOPHEN [Concomitant]
     Active Substance: ACETAMINOPHEN
     Dosage: 1 GRAM, AS NECESSARY
     Route: 065
     Dates: start: 20221024, end: 20230104

REACTIONS (3)
  - Gastrointestinal anastomotic leak [Recovered/Resolved]
  - Rectal haemorrhage [Fatal]
  - Coccydynia [Unknown]

NARRATIVE: CASE EVENT DATE: 20221018
